FAERS Safety Report 20168333 (Version 10)
Quarter: 2022Q2

REPORT INFORMATION
  Report Type: Report from Study
  Country: US (occurrence: None)
  Receive Date: 20211210
  Receipt Date: 20220418
  Transmission Date: 20220721
  Serious: Yes (Other)
  Sender: FDA-Public Use
  Company Number: US-ROCHE-2865709

PATIENT
  Age: 67 Year
  Sex: Male
  Weight: 111 kg

DRUGS (32)
  1. RANIBIZUMAB [Suspect]
     Active Substance: RANIBIZUMAB
     Indication: Diabetic retinal oedema
     Dosage: RANIBIZUMAB VIA PORT DELIVERY SYSTEM EVERY 24 WEEKS?DOSE LAST STUDY DRUG ADMIN PRIOR AE AND SAE: 100
     Route: 050
     Dates: start: 20210223
  2. RANIBIZUMAB [Suspect]
     Active Substance: RANIBIZUMAB
  3. RANIBIZUMAB [Suspect]
     Active Substance: RANIBIZUMAB
  4. RANIBIZUMAB [Suspect]
     Active Substance: RANIBIZUMAB
  5. RANIBIZUMAB [Suspect]
     Active Substance: RANIBIZUMAB
  6. LANTUS [Concomitant]
     Active Substance: INSULIN GLARGINE
     Indication: Diabetes mellitus
     Dosage: 30 U
     Route: 030
     Dates: start: 201908, end: 20220321
  7. ROSUVASTATIN [Concomitant]
     Active Substance: ROSUVASTATIN
     Indication: Hyperlipidaemia
     Dosage: 25 MG/ML
     Route: 048
     Dates: start: 2018
  8. TAMSULOSIN [Concomitant]
     Active Substance: TAMSULOSIN
     Dosage: 0.4 MG/ML
     Route: 048
     Dates: start: 2011
  9. LYRICA [Concomitant]
     Active Substance: PREGABALIN
     Indication: Neuropathy peripheral
     Dosage: 75 MG/ML
     Route: 048
     Dates: start: 2014
  10. AMLODIPINE [Concomitant]
     Active Substance: AMLODIPINE BESYLATE
     Indication: Hypertension
     Dosage: 5 MG/ML
     Route: 048
     Dates: start: 2018
  11. MOMETASONE [Concomitant]
     Active Substance: MOMETASONE
     Indication: Eczema
     Route: 061
     Dates: start: 20171220
  12. HYDROCODONE [Concomitant]
     Active Substance: HYDROCODONE
     Indication: Nephrolithiasis
     Dosage: 1 TABLET AS NEEDED
     Route: 048
     Dates: start: 20210605, end: 20210705
  13. BESIVANCE [Concomitant]
     Active Substance: BESIFLOXACIN
     Dosage: 1 GTT
     Route: 047
     Dates: start: 20210611, end: 20210705
  14. BESIVANCE [Concomitant]
     Active Substance: BESIFLOXACIN
     Route: 047
     Dates: start: 20211206, end: 20211209
  15. LOTEMAX [Concomitant]
     Active Substance: LOTEPREDNOL ETABONATE
     Route: 047
     Dates: start: 20210611, end: 20210705
  16. BROMSITE [Concomitant]
     Active Substance: BROMFENAC SODIUM
     Route: 047
     Dates: start: 20210611, end: 20210705
  17. ALEVE [Concomitant]
     Active Substance: NAPROXEN SODIUM
     Indication: Cough
     Route: 048
     Dates: start: 20210622, end: 20210705
  18. ALEVE [Concomitant]
     Active Substance: NAPROXEN SODIUM
     Route: 048
     Dates: start: 20211228
  19. DOXYCYCLINE [Concomitant]
     Active Substance: DOXYCYCLINE
     Route: 048
     Dates: start: 20210818, end: 20210920
  20. CEFTRIAXONE [Concomitant]
     Active Substance: CEFTRIAXONE
     Route: 042
     Dates: start: 20210818, end: 20210920
  21. TAMSULOSIN [Concomitant]
     Active Substance: TAMSULOSIN
     Indication: Prostatomegaly
     Route: 048
     Dates: start: 20211120
  22. POTASSIUM CITRATE [Concomitant]
     Active Substance: POTASSIUM CITRATE
     Route: 048
     Dates: start: 20211120
  23. BUMETANIDE [Concomitant]
     Active Substance: BUMETANIDE
     Indication: Oedema peripheral
     Route: 048
     Dates: start: 20211120
  24. BUMETANIDE [Concomitant]
     Active Substance: BUMETANIDE
     Indication: Oedema
  25. CALCITRIOL [Concomitant]
     Active Substance: CALCITRIOL
     Route: 048
     Dates: start: 20211120
  26. AMLODIPINE BESYLATE [Concomitant]
     Active Substance: AMLODIPINE BESYLATE
     Indication: Hypertension
     Route: 048
     Dates: start: 20211120
  27. HYDROXYZINE [Concomitant]
     Active Substance: HYDROXYZINE HYDROCHLORIDE
     Indication: Anxiety
     Route: 048
     Dates: start: 20211120
  28. DIETARY SUPPLEMENT [Concomitant]
     Active Substance: DIETARY SUPPLEMENT
     Route: 048
     Dates: start: 20220221
  29. ROPINIROLE HYDROCHLORIDE [Concomitant]
     Active Substance: ROPINIROLE HYDROCHLORIDE
     Indication: Restless legs syndrome
     Route: 048
     Dates: start: 20220214
  30. RANIBIZUMAB [Concomitant]
     Active Substance: RANIBIZUMAB
     Dosage: DOSE OF STUDY FIRST ADMINISTRATRED 6MG/ML ?DOSE LAST STUDY DRUG ADMIN PRIOR SAE 50 MG/ML?START DATE
     Route: 050
     Dates: start: 20210719
  31. HUMALOG [Concomitant]
     Active Substance: INSULIN LISPRO
     Indication: Type 2 diabetes mellitus
     Dosage: 1U AS NEEDED
     Route: 030
     Dates: start: 201908, end: 20220321
  32. HUMALOG [Concomitant]
     Active Substance: INSULIN LISPRO
     Route: 058
     Dates: start: 20220321

REACTIONS (2)
  - Vitreous haemorrhage [Not Recovered/Not Resolved]
  - Visual impairment [Recovered/Resolved]

NARRATIVE: CASE EVENT DATE: 20210621
